FAERS Safety Report 8269665-0 (Version None)
Quarter: 2012Q2

REPORT INFORMATION
  Report Type: 
  Country: None (occurrence: None)
  Receive Date: 20120405
  Receipt Date: 20120321
  Transmission Date: 20120825
  Serious: Yes (Hospitalization)
  Sender: FDA-Public Use
  Company Number: JPI-P-006833

PATIENT
  Age: 32 Year
  Sex: Female

DRUGS (6)
  1. SPIRONOLACTONE [Concomitant]
  2. FUROSEMIDE [Concomitant]
  3. XYREM [Suspect]
     Indication: NARCOLEPSY
     Dosage: 4.5;6;7.5 GM (2.25;3;3.75 GM, 2 IN 1 D), ORAL
     Route: 048
     Dates: start: 20081125, end: 20081201
  4. XYREM [Suspect]
     Indication: NARCOLEPSY
     Dosage: 4.5;6;7.5 GM (2.25;3;3.75 GM, 2 IN 1 D), ORAL
     Route: 048
     Dates: start: 20081201, end: 20090128
  5. XYREM [Suspect]
     Indication: NARCOLEPSY
     Dosage: 4.5;6;7.5 GM (2.25;3;3.75 GM, 2 IN 1 D), ORAL
     Route: 048
     Dates: start: 20090129
  6. MODAFINIL [Concomitant]

REACTIONS (6)
  - TREATMENT NONCOMPLIANCE [None]
  - BLOOD PRESSURE INCREASED [None]
  - DEATH OF RELATIVE [None]
  - BLOOD POTASSIUM DECREASED [None]
  - PANIC ATTACK [None]
  - FLUID RETENTION [None]
